FAERS Safety Report 7863144-8 (Version None)
Quarter: 2011Q4

REPORT INFORMATION
  Report Type: 
  Country: None (occurrence: None)
  Receive Date: 20111027
  Receipt Date: 20101129
  Transmission Date: 20120403
  Serious: No
  Sender: FDA-Public Use
  Company Number: US-AMGEN-USASP2010006961

PATIENT
  Age: 58 Year
  Sex: Male

DRUGS (8)
  1. VITAMIN D [Concomitant]
     Dosage: 2000 IU, UNK
     Route: 048
  2. FOLIC ACID [Concomitant]
     Dosage: 1 MG, UNK
     Route: 048
  3. LIPITOR [Concomitant]
     Dosage: 10 MG, UNK
     Route: 048
  4. ENBREL [Suspect]
     Indication: PRODUCT USED FOR UNKNOWN INDICATION
     Dosage: 50 MG, UNK
  5. LISINOPRIL AND HYDROCHLORTIAZIDE [Concomitant]
     Dosage: UNK
     Route: 048
  6. FISH OIL [Concomitant]
     Route: 048
  7. TRICOR [Concomitant]
     Dosage: 145 MG, UNK
     Route: 048
  8. METHOTREXATE [Concomitant]
     Dosage: 1 MG, UNK

REACTIONS (3)
  - INJECTION SITE ERYTHEMA [None]
  - INJECTION SITE PRURITUS [None]
  - INJECTION SITE SWELLING [None]
